FAERS Safety Report 16722930 (Version 2)
Quarter: 2019Q4

REPORT INFORMATION
  Report Type: Other
  Country: GB (occurrence: GB)
  Receive Date: 20190821
  Receipt Date: 20191023
  Transmission Date: 20200122
  Serious: Yes (Life-Threatening, Other)
  Sender: FDA-Public Use
  Company Number: GB-EMCURE PHARMACEUTICALS LTD-2018-EPL-0456

PATIENT
  Age: 4 Year
  Sex: Male

DRUGS (1)
  1. NIFEDIPINE. [Suspect]
     Active Substance: NIFEDIPINE
     Indication: PRODUCT USED FOR UNKNOWN INDICATION
     Dosage: 45 MILLIGRAM, DAILY
     Dates: end: 20181101

REACTIONS (5)
  - Cardiac arrest [Unknown]
  - Bradycardia [Unknown]
  - Toxicity to various agents [Unknown]
  - Pallor [Unknown]
  - Product use issue [Unknown]

NARRATIVE: CASE EVENT DATE: 20181101
